FAERS Safety Report 8533025-5 (Version None)
Quarter: 2012Q3

REPORT INFORMATION
  Report Type: 
  Country: None (occurrence: None)
  Receive Date: 20120724
  Receipt Date: 20120723
  Transmission Date: 20120928
  Serious: Yes (Death)
  Sender: FDA-Public Use
  Company Number: CN-SANOFI-AVENTIS-2012SA051876

PATIENT
  Age: 80 Year
  Sex: Male
  Weight: 70 kg

DRUGS (5)
  1. METHOXYPHENAMINE [Concomitant]
     Route: 048
     Dates: start: 20090104, end: 20090120
  2. DIPROPHYLLINE [Concomitant]
     Indication: COUGH
     Route: 041
     Dates: start: 20090104, end: 20090122
  3. PLAVIX [Suspect]
     Indication: ANTICOAGULANT THERAPY
     Route: 048
     Dates: start: 20090106, end: 20090120
  4. DIPROPHYLLINE [Concomitant]
     Indication: ASTHMA
     Route: 041
     Dates: start: 20090104, end: 20090122
  5. RESERPINE [Concomitant]
     Indication: HYPERTENSION
     Route: 048
     Dates: start: 20090104, end: 20090120

REACTIONS (3)
  - DUODENAL ULCER [None]
  - GASTROINTESTINAL HAEMORRHAGE [None]
  - HYPOVOLAEMIC SHOCK [None]
